FAERS Safety Report 8611600-7 (Version None)
Quarter: 2012Q3

REPORT INFORMATION
  Report Type: 
  Country: None (occurrence: None)
  Receive Date: 20120822
  Receipt Date: 20120817
  Transmission Date: 20120928
  Serious: Yes (Death, Hospitalization)
  Sender: FDA-Public Use
  Company Number: US-GILEAD-2012-0059475

PATIENT
  Sex: Male

DRUGS (8)
  1. LORATADINE [Concomitant]
  2. FERROUS GLUCONATE [Concomitant]
  3. TRACLEER [Concomitant]
  4. TREPROSTINIL [Concomitant]
  5. LETAIRIS [Suspect]
     Indication: PULMONARY HYPERTENSION
     Dosage: 5 MG, UNK
     Route: 048
     Dates: start: 20120630, end: 20120729
  6. DIGOXIN [Concomitant]
  7. SILDENAFIL [Concomitant]
  8. VITAMIN C                          /00008001/ [Concomitant]

REACTIONS (12)
  - MULTI-ORGAN FAILURE [None]
  - HEMIPARESIS [None]
  - BONE MARROW FAILURE [None]
  - ASPARTATE AMINOTRANSFERASE INCREASED [None]
  - ALANINE AMINOTRANSFERASE INCREASED [None]
  - DYSARTHRIA [None]
  - PORTAL HYPERTENSION [None]
  - CARDIAC FAILURE [None]
  - HEPATIC CIRRHOSIS [None]
  - PULMONARY HYPERTENSION [None]
  - MOYAMOYA DISEASE [None]
  - CARDIAC ARREST [None]
